FAERS Safety Report 6601692-9 (Version None)
Quarter: 2010Q1

REPORT INFORMATION
  Report Type: 
  Country: None (occurrence: None)
  Receive Date: 20100225
  Receipt Date: 20100216
  Transmission Date: 20100710
  Serious: Yes (Other)
  Sender: FDA-Public Use
  Company Number: JP-ROCHE-686812

PATIENT
  Age: 79 Year
  Sex: Male

DRUGS (9)
  1. CAPECITABINE [Suspect]
     Indication: COLON CANCER
     Dosage: DRUG REPORTED AS XELODA 300(CAPECITABINE)
     Route: 048
     Dates: start: 20090428, end: 20090511
  2. CAPECITABINE [Suspect]
     Route: 048
     Dates: start: 20090519, end: 20090601
  3. CAPECITABINE [Suspect]
     Route: 048
     Dates: start: 20090609, end: 20090622
  4. CAPECITABINE [Suspect]
     Dosage: DOSE DECREASED
     Route: 048
     Dates: start: 20090707, end: 20090720
  5. CAPECITABINE [Suspect]
     Dosage: DOSE DECREASED.
     Route: 048
     Dates: start: 20090804, end: 20090817
  6. CAPECITABINE [Suspect]
     Route: 048
     Dates: start: 20090901, end: 20090912
  7. UREPEARL [Concomitant]
     Dosage: FORM: OINTMENT AND CREAM. NOTE: PROPERLY.
     Route: 003
     Dates: start: 20090428, end: 20090912
  8. PYDOXAL [Concomitant]
     Route: 048
     Dates: start: 20090428, end: 20090912
  9. FERROMIA [Concomitant]
     Dosage: FORM: PERORAL AGENT
     Route: 048
     Dates: start: 20090428, end: 20090912

REACTIONS (2)
  - FRACTURE [None]
  - PALMAR-PLANTAR ERYTHRODYSAESTHESIA SYNDROME [None]
